FAERS Safety Report 21075379 (Version 1)
Quarter: 2022Q3

REPORT INFORMATION
  Report Type: Spontaneous
  Country: CN (occurrence: CN)
  Receive Date: 20220713
  Receipt Date: 20220713
  Transmission Date: 20221027
  Serious: Yes (Other)
  Sender: FDA-Public Use
  Company Number: None

PATIENT
  Age: 56 Year
  Sex: Female
  Weight: 55 kg

DRUGS (9)
  1. CYCLOPHOSPHAMIDE [Suspect]
     Active Substance: CYCLOPHOSPHAMIDE
     Indication: Breast cancer female
     Dosage: UNK, QD, 1ST CYCLE, CYCLOPHOSPHAMIDE FOR INJECTION (ENDOXAN CTX) (720MG) + NS (40ML)
     Route: 042
  2. CYCLOPHOSPHAMIDE [Suspect]
     Active Substance: CYCLOPHOSPHAMIDE
     Dosage: 720 MG, QD, 2ND CYCLE, CYCLOPHOSPHAMIDE FOR INJECTION (ENDOXAN CTX) (720MG) + NS (40ML)
     Route: 042
     Dates: start: 20220511, end: 20220511
  3. SODIUM CHLORIDE [Suspect]
     Active Substance: SODIUM CHLORIDE
     Indication: Medication dilution
     Dosage: UNK, QD, 1ST CYCLE, (CYCLOPHOSPHAMIDE FOR INJECTION (ENDOXAN CTX) 720 MG + NS 40ML)
     Route: 042
  4. SODIUM CHLORIDE [Suspect]
     Active Substance: SODIUM CHLORIDE
     Dosage: 40 ML, QD, 2ND CYCLE, CYCLOPHOSPHAMIDE FOR INJECTION (ENDOXAN CTX) (720MG) + NS (40ML)
     Route: 042
     Dates: start: 20220511, end: 20220511
  5. SODIUM CHLORIDE [Suspect]
     Active Substance: SODIUM CHLORIDE
     Dosage: UNK, QD, 1ST CYCLE, (EPIRUBICIN HYDROCHLORIDE FOR INJECTION (PHARMORUBICIN) 100 MG + NS 100ML)
     Route: 041
  6. SODIUM CHLORIDE [Suspect]
     Active Substance: SODIUM CHLORIDE
     Dosage: 100 ML, QD, 2ND CYCLE, EPIRUBICIN HYDROCHLORIDE FOR INJECTION (PHARMORUBICIN) (100MG) + NS (100ML)
     Route: 041
     Dates: start: 20220511, end: 20220511
  7. EPIRUBICIN [Suspect]
     Active Substance: EPIRUBICIN
     Indication: Breast cancer female
     Dosage: UNK, 1ST CYCLE, EPIRUBICIN HYDROCHLORIDE FOR INJECTION (PHARMORUBICIN) (100MG) + NS (100ML)
     Route: 041
  8. EPIRUBICIN [Suspect]
     Active Substance: EPIRUBICIN
     Dosage: 100 MG, QD, 2ND CYCLE, EPIRUBICIN HYDROCHLORIDE FOR INJECTION (PHARMORUBICIN) (100MG) + NS (100ML)
     Route: 041
     Dates: start: 20220511, end: 20220511
  9. AI DUO [Concomitant]
     Indication: Product used for unknown indication
     Dosage: 6 MG, THIRD DAY
     Route: 058
     Dates: start: 202205

REACTIONS (2)
  - White blood cell count decreased [Recovered/Resolved]
  - Agranulocytosis [Recovered/Resolved]

NARRATIVE: CASE EVENT DATE: 20220518
